FAERS Safety Report 12503900 (Version 1)
Quarter: 2016Q2

REPORT INFORMATION
  Report Type: Spontaneous
  Country: US (occurrence: None)
  Receive Date: 20160627
  Receipt Date: 20160627
  Transmission Date: 20160815
  Serious: No
  Sender: FDA-Public Use
  Company Number: None

PATIENT
  Age: 4 Year
  Sex: Male
  Weight: 15.7 kg

DRUGS (1)
  1. MORPHINE PCA , 1MG/ML 20ML IMS [Suspect]
     Active Substance: MORPHINE
     Dates: start: 20160616, end: 20160622

REACTIONS (3)
  - Pain [None]
  - Syringe issue [None]
  - Drug ineffective [None]

NARRATIVE: CASE EVENT DATE: 20160622
